FAERS Safety Report 11948228 (Version 1)
Quarter: 2016Q1

REPORT INFORMATION
  Report Type: Spontaneous
  Country: US (occurrence: US)
  Receive Date: 20160125
  Receipt Date: 20160125
  Transmission Date: 20160526
  Serious: No
  Sender: FDA-Public Use
  Company Number: US-TARO-2015TAR01112

PATIENT
  Age: 56 Year
  Sex: Female

DRUGS (2)
  1. TOPICORT [Suspect]
     Active Substance: DESOXIMETASONE
     Indication: PRURITUS
     Dosage: UNK UNK, ONCE
     Route: 061
     Dates: start: 20151129, end: 20151129
  2. KETOCONAZOLE SHAMPOO [Concomitant]
     Active Substance: KETOCONAZOLE

REACTIONS (2)
  - Seborrhoea [Not Recovered/Not Resolved]
  - Drug ineffective [Recovered/Resolved]

NARRATIVE: CASE EVENT DATE: 20151129
